FAERS Safety Report 8307124-7 (Version None)
Quarter: 2012Q2

REPORT INFORMATION
  Report Type: 
  Country: None (occurrence: None)
  Receive Date: 20120424
  Receipt Date: 20120419
  Transmission Date: 20120825
  Serious: Yes (Death, Other)
  Sender: FDA-Public Use
  Company Number: US-PFIZER INC-2012097762

PATIENT
  Sex: Female

DRUGS (3)
  1. EFFEXOR XR [Suspect]
     Indication: MAJOR DEPRESSION
     Dosage: 300 MG, 1X/DAY
     Route: 048
     Dates: start: 20100304
  2. CELEXA [Concomitant]
     Dosage: UNK
  3. DEXIDRINE [Concomitant]
     Dosage: UNK

REACTIONS (1)
  - DEATH [None]
